FAERS Safety Report 25763209 (Version 1)
Quarter: 2025Q3

REPORT INFORMATION
  Report Type: Spontaneous
  Country: US (occurrence: US)
  Receive Date: 20250905
  Receipt Date: 20250905
  Transmission Date: 20251021
  Serious: No
  Sender: SANOFI AVENTIS
  Company Number: US-SA-2025SA263757

PATIENT
  Sex: Male

DRUGS (1)
  1. DUPIXENT [Suspect]
     Active Substance: DUPILUMAB
     Indication: Oesophageal obstruction
     Dosage: 300 MG, QW
     Route: 058
     Dates: start: 202412

REACTIONS (1)
  - Testicular disorder [Unknown]
